FAERS Safety Report 11482419 (Version 2)
Quarter: 2016Q2

REPORT INFORMATION
  Report Type: Report from Study
  Country: CO (occurrence: CO)
  Receive Date: 20150909
  Receipt Date: 20160628
  Transmission Date: 20160815
  Serious: Yes (Hospitalization)
  Sender: FDA-Public Use
  Company Number: CO-ROCHE-1604202

PATIENT
  Age: 53 Year
  Sex: Female

DRUGS (1)
  1. ACTEMRA [Suspect]
     Active Substance: TOCILIZUMAB
     Indication: RHEUMATOID ARTHRITIS
     Route: 042
     Dates: start: 20140403

REACTIONS (4)
  - Dyspepsia [Unknown]
  - Rectal haemorrhage [Unknown]
  - Cholelithiasis [Unknown]
  - Anaemia [Unknown]

NARRATIVE: CASE EVENT DATE: 201505
